FAERS Safety Report 13256049 (Version 1)
Quarter: 2017Q1

REPORT INFORMATION
  Report Type: Spontaneous
  Country: US (occurrence: US)
  Receive Date: 20170221
  Receipt Date: 20170221
  Transmission Date: 20170428
  Serious: No
  Sender: FDA-Public Use
  Company Number: GXBR2016US003502

PATIENT
  Sex: Male

DRUGS (1)
  1. AMOXICILLIN AND CLAVULANATE POTASSIUM TABLETS USP [Suspect]
     Active Substance: AMOXICILLIN\CLAVULANATE POTASSIUM
     Indication: POSTOPERATIVE WOUND INFECTION
     Dosage: 1 DF, BID FOR 10 DAYS
     Route: 048
     Dates: start: 2016

REACTIONS (1)
  - Impaired healing [Recovered/Resolved]
